FAERS Safety Report 5622166-8 (Version None)
Quarter: 2008Q1

REPORT INFORMATION
  Report Type: 
  Country: None (occurrence: None)
  Receive Date: 20080211
  Receipt Date: 20080207
  Transmission Date: 20080703
  Serious: Yes (Life-Threatening, Hospitalization)
  Sender: FDA-Public Use
  Company Number: ES-WYE-H02547608

PATIENT
  Sex: Male
  Weight: 74 kg

DRUGS (1)
  1. TEMSIROLIMUS [Suspect]
     Indication: MANTLE CELL LYMPHOMA
     Dosage: 50 MG
     Route: 042
     Dates: start: 20061106, end: 20080130

REACTIONS (2)
  - PULMONARY HAEMORRHAGE [None]
  - RESPIRATORY TRACT HAEMORRHAGE [None]
